FAERS Safety Report 11120518 (Version 3)
Quarter: 2017Q2

REPORT INFORMATION
  Report Type: Report from Study
  Country: US (occurrence: US)
  Receive Date: 20150518
  Receipt Date: 20170505
  Transmission Date: 20170829
  Serious: Yes (Death, Other)
  Sender: FDA-Public Use
  Company Number: US-ROCHE-1577660

PATIENT
  Age: 61 Year
  Sex: Male
  Weight: 99 kg

DRUGS (3)
  1. IPILIMUMAB [Suspect]
     Active Substance: IPILIMUMAB
     Indication: MALIGNANT MELANOMA
     Dosage: 296 MG
     Route: 042
     Dates: start: 20140804
  2. BEVACIZUMAB [Suspect]
     Active Substance: BEVACIZUMAB
     Indication: MALIGNANT MELANOMA
     Dosage: LAST DOSE ADMINISTERED ON 04/AUG/2015 (SINGLE DOSE)
     Route: 042
     Dates: start: 20140804
  3. BEVACIZUMAB [Suspect]
     Active Substance: BEVACIZUMAB
     Dosage: ON DAY 1 OF EACH CYCLE BEGINNING ON CYCLE 5
     Route: 042
     Dates: start: 20140825

REACTIONS (4)
  - Alanine aminotransferase increased [Not Recovered/Not Resolved]
  - Malignant melanoma [Fatal]
  - Aspartate aminotransferase increased [Not Recovered/Not Resolved]
  - Lipase increased [Unknown]

NARRATIVE: CASE EVENT DATE: 20140825
